FAERS Safety Report 9458869 (Version 1)
Quarter: 2013Q3

REPORT INFORMATION
  Report Type: Report from Study
  Country: US (occurrence: US)
  Receive Date: 20130814
  Receipt Date: 20130814
  Transmission Date: 20140515
  Serious: Yes (Hospitalization, Other)
  Sender: FDA-Public Use
  Company Number: US-ABBOTT-13P-163-1130292-00

PATIENT
  Age: 37 Year
  Sex: Male

DRUGS (2)
  1. HUMIRA [Suspect]
     Indication: CROHN^S DISEASE
  2. OMEPRAZOLE [Concomitant]
     Indication: GASTRIC DISORDER

REACTIONS (12)
  - Intestinal anastomosis complication [Unknown]
  - Intestinal resection [Not Recovered/Not Resolved]
  - Abscess [Unknown]
  - Fistula [Unknown]
  - Enterostomy [Unknown]
  - Enterostomy closure [Unknown]
  - Sepsis [Unknown]
  - Rash [Unknown]
  - Intestinal resection [Unknown]
  - Intestinal anastomosis complication [Unknown]
  - Abdominal pain upper [Unknown]
  - Diarrhoea [Not Recovered/Not Resolved]
